FAERS Safety Report 15248329 (Version 1)
Quarter: 2018Q3

REPORT INFORMATION
  Report Type: Report from Study
  Country: US (occurrence: US)
  Receive Date: 20180807
  Receipt Date: 20180807
  Transmission Date: 20181010
  Serious: No
  Sender: FDA-Public Use
  Company Number: US-SA-2018SA115289

PATIENT
  Age: 53 Year
  Sex: Female
  Weight: 101.8 kg

DRUGS (6)
  1. MUCINEX [Concomitant]
     Active Substance: GUAIFENESIN
     Dosage: 1200 MG,QD
     Route: 048
     Dates: start: 20180131, end: 20180306
  2. DUPILUMAB [Suspect]
     Active Substance: DUPILUMAB
     Indication: ASTHMA
     Dosage: 300 MG,1X
     Route: 058
     Dates: start: 20170215, end: 20170215
  3. DUPILUMAB [Suspect]
     Active Substance: DUPILUMAB
     Dosage: 300 MG,QOW
     Route: 058
     Dates: start: 20170301, end: 20180101
  4. SALBUTAMOL [Suspect]
     Active Substance: ALBUTEROL
     Indication: ASTHMA
     Dosage: 1 DF,QD
     Route: 055
     Dates: start: 1998
  5. XANAX [Concomitant]
     Active Substance: ALPRAZOLAM
     Indication: PROPHYLAXIS
     Dosage: .5 MG,QD
     Route: 048
     Dates: start: 2013
  6. MIRABEGRON [Concomitant]
     Active Substance: MIRABEGRON
     Indication: PROPHYLAXIS
     Dosage: 25 MG,QD
     Route: 048
     Dates: start: 20170502

REACTIONS (2)
  - Pneumonia [Recovered/Resolved]
  - Bronchitis [Recovered/Resolved]

NARRATIVE: CASE EVENT DATE: 20180216
